FAERS Safety Report 9773426 (Version 2)
Quarter: 2014Q1

REPORT INFORMATION
  Report Type: Spontaneous
  Country: DE (occurrence: DE)
  Receive Date: 20131219
  Receipt Date: 20140314
  Transmission Date: 20141002
  Serious: Yes (Death, Hospitalization, Other)
  Sender: FDA-Public Use
  Company Number: DE-ASTRAZENECA-2013SE92010

PATIENT
  Age: 59 Year
  Sex: Female
  Weight: 70 kg

DRUGS (3)
  1. SEROQUEL [Suspect]
     Indication: SCHIZOAFFECTIVE DISORDER
     Dosage: DOSE NOT KNOWN IN INTOXICATION
     Route: 048
     Dates: start: 20131203
  2. SEROQUEL [Suspect]
     Indication: POISONING
     Dosage: DOSE NOT KNOWN IN INTOXICATION
     Route: 048
     Dates: start: 20131203
  3. FLUPENTIXOL [Concomitant]

REACTIONS (4)
  - Completed suicide [Fatal]
  - Respiratory failure [Fatal]
  - Acute respiratory distress syndrome [Fatal]
  - Pulmonary fibrosis [Fatal]
